FAERS Safety Report 7718201-3 (Version None)
Quarter: 2011Q3

REPORT INFORMATION
  Report Type: 
  Country: None (occurrence: None)
  Receive Date: 20110830
  Receipt Date: 20110824
  Transmission Date: 20111222
  Serious: Yes (Hospitalization)
  Sender: FDA-Public Use
  Company Number: DE-ROCHE-795418

PATIENT
  Sex: Male
  Weight: 78 kg

DRUGS (8)
  1. MARCUMAR [Concomitant]
     Indication: ATRIAL FIBRILLATION
     Route: 048
  2. CAPECITABINE [Suspect]
     Dosage: DATE OF LAST DOSE: 07 AUGUST 2011. TREATMENT DELAYED
     Route: 048
     Dates: start: 20110419
  3. OXALIPLATIN [Suspect]
     Indication: COLORECTAL CANCER
     Dosage: LAST DOSE PRIOR TO SAE: 01 AUGUST 2011. 150 MG/M2 ON D1 OF 3 WEAK CYCLE
     Route: 042
     Dates: start: 20101202
  4. DEXAMETHASONE [Concomitant]
     Indication: VOMITING
     Dosage: FREQUENCY: 1 T DAILY
     Route: 042
     Dates: start: 20110418, end: 20110418
  5. CAPECITABINE [Suspect]
     Indication: COLORECTAL CANCER
     Dosage: LAST DOSE PRIOR TO SAE: 19 APRIL 2011
     Route: 048
     Dates: start: 20101202
  6. HEPARIN [Concomitant]
     Indication: ATRIAL FIBRILLATION
     Dosage: DRUG NAME REPORTED AS: UNFRACTIONATED HEPARIN
     Route: 058
     Dates: start: 20110129
  7. NOVALGIN [Concomitant]
     Indication: PAIN
     Dosage: FREQUENCY: 2 X 1 TABLET
     Route: 048
     Dates: start: 20110329
  8. GRANISETRON [Concomitant]
     Dosage: FREQUENCY: ON DEMAND
     Route: 048
     Dates: start: 20110418, end: 20110418

REACTIONS (2)
  - ILEUS [None]
  - SUBILEUS [None]
